FAERS Safety Report 17651834 (Version 1)
Quarter: 2020Q2

REPORT INFORMATION
  Report Type: Report from Study
  Country: US (occurrence: US)
  Receive Date: 20200409
  Receipt Date: 20200409
  Transmission Date: 20200713
  Serious: No
  Sender: FDA-Public Use
  Company Number: US-REGENERON PHARMACEUTICALS, INC.-2020-19926

PATIENT

DRUGS (8)
  1. BLINDED PLACEBO (RILONACEPT) [Suspect]
     Active Substance: RILONACEPT
     Indication: PERICARDITIS
     Dosage: BLINDED
     Route: 058
     Dates: start: 20190322
  2. AZITHROMYCIN ANHYDROUS. [Concomitant]
     Active Substance: AZITHROMYCIN ANHYDROUS
     Indication: BRONCHITIS
     Dosage: 500 MG, QD
     Route: 048
     Dates: start: 20200106, end: 20200108
  3. OXYCODONE [Concomitant]
     Active Substance: OXYCODONE
     Indication: ARTHRITIS
     Dosage: (10 MG, AS REQUIRED)
     Route: 048
     Dates: start: 201802
  4. PANTOPRAZOLE [Concomitant]
     Active Substance: PANTOPRAZOLE
     Indication: GASTROOESOPHAGEAL REFLUX DISEASE
     Dosage: 40 MG, 1 IN 1D
     Route: 048
     Dates: start: 2018
  5. ACETAMINOPHEN. [Concomitant]
     Active Substance: ACETAMINOPHEN
     Indication: ARTHRITIS
     Dosage: 325 MG, AS NECESSARY
     Route: 048
     Dates: start: 201802
  6. BENZONATATE. [Concomitant]
     Active Substance: BENZONATATE
     Indication: BRONCHITIS
     Dosage: 600 MG (200 MG,3 IN 1 D)
     Route: 048
     Dates: start: 20200106
  7. CLONAZEPAM. [Concomitant]
     Active Substance: CLONAZEPAM
     Indication: ANXIETY
     Dosage: 0.25 MG, 1 IN 1 D
     Route: 048
     Dates: start: 2015
  8. BLINDED RILONACEPT [Suspect]
     Active Substance: RILONACEPT
     Indication: PERICARDITIS
     Dosage: BLINDED
     Route: 058
     Dates: start: 20190322

REACTIONS (1)
  - Squamous cell carcinoma [Not Recovered/Not Resolved]

NARRATIVE: CASE EVENT DATE: 20200128
